FAERS Safety Report 23226732 (Version 1)
Quarter: 2023Q4

REPORT INFORMATION
  Report Type: Spontaneous
  Country: ES (occurrence: ES)
  Receive Date: 20231124
  Receipt Date: 20231124
  Transmission Date: 20240109
  Serious: Yes (Disabling)
  Sender: FDA-Public Use
  Company Number: ES-SUN PHARMACEUTICAL INDUSTRIES LTD-2023RR-420169

PATIENT
  Age: 50 Year
  Sex: Male
  Weight: 69 kg

DRUGS (1)
  1. ACETAMINOPHEN [Suspect]
     Active Substance: ACETAMINOPHEN
     Indication: Pain
     Dosage: 500 MG (1 DOSIS)
     Route: 048
     Dates: start: 20230805, end: 20230806

REACTIONS (9)
  - Nausea [Recovering/Resolving]
  - Abdominal pain [Recovering/Resolving]
  - Dizziness [Recovering/Resolving]
  - Pruritus [Recovering/Resolving]
  - Pain [Not Recovered/Not Resolved]
  - Pain of skin [Recovering/Resolving]
  - Bradyphrenia [Recovering/Resolving]
  - Bladder spasm [Recovering/Resolving]
  - Fatigue [Recovering/Resolving]

NARRATIVE: CASE EVENT DATE: 20230805
